FAERS Safety Report 14866151 (Version 1)
Quarter: 2018Q2

REPORT INFORMATION
  Report Type: Spontaneous
  Country: US (occurrence: US)
  Receive Date: 20180508
  Receipt Date: 20180508
  Transmission Date: 20180711
  Serious: No
  Sender: FDA-Public Use
  Company Number: US-ROCHE-1982379

PATIENT
  Sex: Female

DRUGS (13)
  1. NITROGLYCERINE [Concomitant]
     Active Substance: NITROGLYCERIN
  2. PREDNISONE. [Concomitant]
     Active Substance: PREDNISONE
  3. CARVEDILOL. [Concomitant]
     Active Substance: CARVEDILOL
     Route: 065
  4. METRONIDAZOL [Concomitant]
     Active Substance: METRONIDAZOLE
  5. ESBRIET [Suspect]
     Active Substance: PIRFENIDONE
     Indication: INTERSTITIAL LUNG DISEASE
     Route: 048
  6. BUMETANIDE. [Concomitant]
     Active Substance: BUMETANIDE
  7. AMLODIPINE [Concomitant]
     Active Substance: AMLODIPINE BESYLATE
  8. TIMOLOL. [Concomitant]
     Active Substance: TIMOLOL
  9. ASPIRIN. [Concomitant]
     Active Substance: ASPIRIN
  10. ROSUVASTATIN. [Concomitant]
     Active Substance: ROSUVASTATIN
  11. NOVOLOG [Concomitant]
     Active Substance: INSULIN ASPART
  12. TOUJEO [Concomitant]
     Active Substance: INSULIN GLARGINE
  13. LISINOPRIL. [Concomitant]
     Active Substance: LISINOPRIL

REACTIONS (2)
  - Hot flush [Unknown]
  - Glycosylated haemoglobin increased [Unknown]
